FAERS Safety Report 8990799 (Version 1)
Quarter: 2012Q4

REPORT INFORMATION
  Report Type: Spontaneous
  Country: US (occurrence: None)
  Receive Date: 20121226
  Receipt Date: 20121226
  Transmission Date: 20130627
  Serious: No
  Sender: FDA-Public Use
  Company Number: None

PATIENT
  Age: 75 Year
  Sex: Female
  Weight: 75.75 kg

DRUGS (1)
  1. CARBOPLATIN [Suspect]
     Indication: CANCER
     Dosage: IV
cycle 4
     Route: 042
     Dates: start: 20121024, end: 20121024

REACTIONS (6)
  - Dyspnoea [None]
  - Mental status changes [None]
  - Hypotension [None]
  - Wheezing [None]
  - Somnolence [None]
  - Unevaluable event [None]
